FAERS Safety Report 10271731 (Version 1)
Quarter: 2014Q3

REPORT INFORMATION
  Report Type: Spontaneous
  Country: US (occurrence: US)
  Receive Date: 20140701
  Receipt Date: 20140701
  Transmission Date: 20150326
  Serious: No
  Sender: FDA-Public Use
  Company Number: US-SA-2014SA052497

PATIENT
  Age: 9 Year
  Sex: Male
  Weight: 43.9 kg

DRUGS (1)
  1. CEREZYME [Suspect]
     Active Substance: IMIGLUCERASE
     Indication: GAUCHER^S DISEASE
     Dosage: DOSE:63.7 UNIT(S)/KILOGRAM BODYWEIGHT
     Route: 042
     Dates: start: 200901

REACTIONS (1)
  - Device issue [Not Recovered/Not Resolved]
